FAERS Safety Report 17603867 (Version 1)
Quarter: 2020Q1

REPORT INFORMATION
  Report Type: Report from Study
  Country: IT (occurrence: IT)
  Receive Date: 20200331
  Receipt Date: 20200331
  Transmission Date: 20200409
  Serious: Yes (Other)
  Sender: FDA-Public Use
  Company Number: IT-TEVA-2020-IT-1212940

PATIENT
  Age: 72 Year
  Sex: Male
  Weight: 100 kg

DRUGS (8)
  1. XANAX [Suspect]
     Active Substance: ALPRAZOLAM
     Route: 065
  2. NORADOX [Suspect]
     Active Substance: DOXAZOSIN MESYLATE
     Route: 065
  3. EUTIROX [Suspect]
     Active Substance: LEVOTHYROXINE SODIUM
     Route: 065
  4. PAROXETINE. [Suspect]
     Active Substance: PAROXETINE
     Route: 065
  5. LEVOPRAID (SULPIRIDE) [Suspect]
     Active Substance: SULPIRIDE
     Route: 065
  6. PANTOPRAZOLE [Suspect]
     Active Substance: PANTOPRAZOLE
     Route: 065
  7. XARELTO [Suspect]
     Active Substance: RIVAROXABAN
     Indication: ATRIAL FIBRILLATION
     Dosage: 20 MG
     Route: 048
     Dates: start: 20180501, end: 20200127
  8. FARALZIN [Suspect]
     Active Substance: ALFUZOSIN HYDROCHLORIDE
     Route: 065

REACTIONS (1)
  - Melaena [Unknown]

NARRATIVE: CASE EVENT DATE: 20181112
